FAERS Safety Report 10935344 (Version 2)
Quarter: 2015Q1

REPORT INFORMATION
  Report Type: Spontaneous
  Country: RO (occurrence: RO)
  Receive Date: 20150320
  Receipt Date: 20150327
  Transmission Date: 20150721
  Serious: Yes (Other)
  Sender: FDA-Public Use
  Company Number: RO-ASTRAZENECA-2015SE24448

PATIENT
  Age: 68 Year
  Sex: Female

DRUGS (2)
  1. BRILIQUE [Suspect]
     Active Substance: TICAGRELOR
     Route: 048
  2. ORAL ANTICOAGULANT [Concomitant]
     Route: 048

REACTIONS (2)
  - Myocardial infarction [Unknown]
  - Thrombosis in device [Unknown]
